FAERS Safety Report 19500908 (Version 1)
Quarter: 2021Q3

REPORT INFORMATION
  Report Type: Spontaneous
  Country: US (occurrence: US)
  Receive Date: 20210706
  Receipt Date: 20210706
  Transmission Date: 20211014
  Serious: No
  Sender: FDA-Public Use
  Company Number: None

PATIENT
  Age: 54 Year
  Sex: Female
  Weight: 74.25 kg

DRUGS (2)
  1. EFFEXOR [Suspect]
     Active Substance: VENLAFAXINE HYDROCHLORIDE
     Indication: HOT FLUSH
     Dosage: ?          QUANTITY:1 CAPSULE(S);?
     Route: 048
     Dates: start: 20140501, end: 20140701
  2. MULTI VITAMINS AND MINERALS [Concomitant]

REACTIONS (5)
  - Hyperhidrosis [None]
  - Liver injury [None]
  - Blood cholesterol increased [None]
  - Menopausal symptoms [None]
  - Pain [None]

NARRATIVE: CASE EVENT DATE: 20140601
